FAERS Safety Report 13814860 (Version 1)
Quarter: 2017Q3

REPORT INFORMATION
  Report Type: Spontaneous
  Country: US (occurrence: US)
  Receive Date: 20170731
  Receipt Date: 20170731
  Transmission Date: 20171127
  Serious: No
  Sender: FDA-Public Use
  Company Number: US-BAYER-2017-145337

PATIENT
  Age: 76 Year
  Sex: Female
  Weight: 48.53 kg

DRUGS (2)
  1. MIRALAX [Suspect]
     Active Substance: POLYETHYLENE GLYCOL 3350
     Indication: CONSTIPATION
     Dosage: 2-3 TABLESPOONS DAILY
     Route: 048
     Dates: start: 2011, end: 20170728
  2. MIRALAX [Suspect]
     Active Substance: POLYETHYLENE GLYCOL 3350
     Indication: CONSTIPATION
     Dosage: 2-3 TABLESPOONS DAILY
     Route: 048
     Dates: start: 2011, end: 20170728

REACTIONS (3)
  - Product use in unapproved indication [None]
  - Therapeutic response unexpected [None]
  - Product use issue [None]
